FAERS Safety Report 5049525-9 (Version None)
Quarter: 2006Q2

REPORT INFORMATION
  Report Type: 
  Country: None (occurrence: None)
  Receive Date: 20060613
  Receipt Date: 20060425
  Transmission Date: 20061013
  Serious: Yes (Life-Threatening, Hospitalization)
  Sender: FDA-Public Use
  Company Number: 2006-00997

PATIENT
  Age: 47 Year
  Sex: Female
  Weight: 60.9 kg

DRUGS (9)
  1. VELCADE [Suspect]
     Indication: MULTIPLE MYELOMA
     Dosage: 2 MG, IV BOLUS
     Route: 040
     Dates: start: 20060316, end: 20060323
  2. CELEBREX [Suspect]
     Indication: DRUG USE FOR UNKNOWN INDICATION
     Dosage: 100 MG, ORAL
     Route: 048
     Dates: start: 20060323
  3. ALLOPURINOL [Concomitant]
  4. FLUCONAZOLE [Concomitant]
  5. VALTREX [Concomitant]
  6. NEXIUM [Concomitant]
  7. SEPTRA (SULFAMETHOXAZOLE) [Concomitant]
  8. REGLAN [Concomitant]
  9. MORPHINE [Concomitant]

REACTIONS (4)
  - CHILLS [None]
  - NAUSEA [None]
  - RENAL FAILURE [None]
  - URINE OUTPUT DECREASED [None]
